FAERS Safety Report 7405666-X (Version None)
Quarter: 2011Q2

REPORT INFORMATION
  Report Type: 
  Country: None (occurrence: None)
  Receive Date: 20110411
  Receipt Date: 20110404
  Transmission Date: 20111010
  Serious: Yes (Hospitalization, Other)
  Sender: FDA-Public Use
  Company Number: US-ROCHE-718412

PATIENT
  Sex: Male
  Weight: 85 kg

DRUGS (13)
  1. CELEXA [Concomitant]
  2. VIMPAT [Concomitant]
  3. KEPPRA [Concomitant]
  4. LIPITOR [Concomitant]
  5. IRINOTECAN [Suspect]
     Indication: GLIOBLASTOMA MULTIFORME
     Dosage: DOSE LEVEL: 125 MG/M2, FREQUENCY: NOT REPORTED
     Route: 065
     Dates: start: 20100723
  6. ZOFRAN [Concomitant]
  7. CARAFATE [Concomitant]
  8. AMBIEN [Concomitant]
  9. CARDURA [Concomitant]
  10. PROVIGIL [Concomitant]
  11. PROTONIX [Concomitant]
  12. BEVACIZUMAB [Suspect]
     Indication: GLIOBLASTOMA MULTIFORME
     Dosage: DOSE LEVEL: 10 MG/KG
     Route: 065
  13. CARBOPLATIN [Suspect]
     Indication: GLIOBLASTOMA MULTIFORME
     Dosage: DOSE LEVEL: AUC - 4
     Route: 042
     Dates: start: 20100723

REACTIONS (4)
  - INTRACRANIAL HYPOTENSION [None]
  - MENINGITIS [None]
  - HYDROCEPHALUS [None]
  - INCISION SITE INFECTION [None]
